FAERS Safety Report 23597427 (Version 1)
Quarter: 2024Q1

REPORT INFORMATION
  Report Type: Spontaneous
  Country: US (occurrence: None)
  Receive Date: 20240305
  Receipt Date: 20240305
  Transmission Date: 20240409
  Serious: Yes (Hospitalization)
  Sender: FDA-Public Use
  Company Number: None

PATIENT
  Age: 68 Year
  Sex: Male
  Weight: 112.5 kg

DRUGS (16)
  1. MOUNJARO [Suspect]
     Active Substance: TIRZEPATIDE
     Indication: Weight decreased
     Dosage: OTHER QUANTITY : 1 INJECTION(S);?OTHER FREQUENCY : ONCE WEEKLY;?
     Route: 058
  2. MOUNJARO [Suspect]
     Active Substance: TIRZEPATIDE
     Indication: Type 2 diabetes mellitus
  3. ALLOPURINOL [Concomitant]
     Active Substance: ALLOPURINOL
  4. GLUCOPHAGE [Concomitant]
     Active Substance: METFORMIN HYDROCHLORIDE
  5. HYDROCHLOROTHIAZIDE\OLMESARTAN MEDOXOMIL [Concomitant]
     Active Substance: HYDROCHLOROTHIAZIDE\OLMESARTAN MEDOXOMIL
  6. SIMVASTATIN [Concomitant]
     Active Substance: SIMVASTATIN
  7. METOPROLOL [Concomitant]
     Active Substance: METOPROLOL
  8. ELIQUIS [Concomitant]
     Active Substance: APIXABAN
  9. PRILOSEC [Concomitant]
     Active Substance: OMEPRAZOLE MAGNESIUM
  10. HERBALS [Concomitant]
     Active Substance: HERBALS
  11. SAFFRON [Concomitant]
     Active Substance: SAFFRON
  12. HERBALS\SAW PALMETTO [Concomitant]
     Active Substance: HERBALS\SAW PALMETTO
  13. DANDELION ROOT [Concomitant]
  14. FENUGREEK SEED [Concomitant]
     Active Substance: FENUGREEK SEED
  15. ginko biloka [Concomitant]
  16. ginko biloka [Concomitant]

REACTIONS (4)
  - Product substitution issue [None]
  - Heart rate irregular [None]
  - Symptom recurrence [None]
  - Atrial fibrillation [None]

NARRATIVE: CASE EVENT DATE: 20240216
